FAERS Safety Report 8761667 (Version 3)
Quarter: 2012Q4

REPORT INFORMATION
  Report Type: Spontaneous
  Country: DE (occurrence: None)
  Receive Date: 20120821
  Receipt Date: 20120910
  Transmission Date: 20130627
  Serious: Yes (Life-Threatening, Hospitalization, Congenital Anomaly, Other)
  Sender: FDA-Public Use
  Company Number: AUR-APL-2012-03532

PATIENT
  Sex: Male
  Weight: 2.4 kg

DRUGS (5)
  1. RAMIPRIL (RAMIPRIL) [Suspect]
     Indication: HYPERTENSION
     Dosage: (until week 12-14)
     Route: 064
  2. RAMIPRIL (RAMIPRIL) [Suspect]
     Indication: HYPERTENSION
     Route: 064
     Dates: end: 20120405
  3. NEBILET [Suspect]
     Indication: HYPERTENSION
     Route: 064
     Dates: end: 20120405
  4. L-THYROX (LEVOTHYROXINE SODIUM) [Concomitant]
  5. VITAVERLAN (FOLIC ACID) [Concomitant]

REACTIONS (12)
  - Neonatal anuria [None]
  - Caesarean section [None]
  - Breech presentation [None]
  - Renal failure [None]
  - Small for dates baby [None]
  - Renal aplasia [None]
  - Maternal drugs affecting foetus [None]
  - Extremity contracture [None]
  - Cranial sutures widening [None]
  - Peritoneal dialysis [None]
  - Premature baby [None]
  - Oligohydramnios [None]
